FAERS Safety Report 22000861 (Version 1)
Quarter: 2023Q1

REPORT INFORMATION
  Report Type: Spontaneous
  Country: US (occurrence: None)
  Receive Date: 20230214
  Receipt Date: 20230214
  Transmission Date: 20230417
  Serious: No
  Sender: FDA-Public Use
  Company Number: None

PATIENT
  Sex: Female

DRUGS (1)
  1. ORENCIA [Suspect]
     Active Substance: ABATACEPT
     Indication: Rheumatoid arthritis
     Dosage: OTHER FREQUENCY : OTHER;?
     Route: 058
     Dates: start: 202202

REACTIONS (5)
  - Rheumatoid arthritis [None]
  - Discomfort [None]
  - Dizziness [None]
  - Headache [None]
  - Hypertension [None]
